FAERS Safety Report 7651132-6 (Version None)
Quarter: 2011Q3

REPORT INFORMATION
  Report Type: 
  Country: None (occurrence: None)
  Receive Date: 20110727
  Receipt Date: 20110715
  Transmission Date: 20111222
  Serious: Yes (Hospitalization)
  Sender: FDA-Public Use
  Company Number: JP-005525

PATIENT
  Sex: Male
  Weight: 46.4 kg

DRUGS (9)
  1. DIGOXIN [Concomitant]
  2. TAMSULOSIN HCL [Suspect]
     Indication: BENIGN PROSTATIC HYPERPLASIA
     Dosage: ORAL
     Route: 048
     Dates: start: 20100805
  3. BUP-4 [Concomitant]
  4. AMLDON [Concomitant]
  5. ZOLPIDEM [Concomitant]
  6. NITROPEN [Concomitant]
  7. DEGARELIX (ASP3550) (240 MG, 480 MG) [Suspect]
     Indication: PROSTATE CANCER
     Dosage: 240 MG TOTAL SUBCUTANEOUS, 480 MG 1X/3 MONTHS SUBCUTANEOUS
     Route: 058
     Dates: start: 20110316, end: 20110316
  8. DEGARELIX (ASP3550) (240 MG, 480 MG) [Suspect]
     Indication: PROSTATE CANCER
     Dosage: 240 MG TOTAL SUBCUTANEOUS, 480 MG 1X/3 MONTHS SUBCUTANEOUS
     Route: 058
     Dates: start: 20110413, end: 20110413
  9. OLMESARTAN MEDOXOMIL [Concomitant]

REACTIONS (7)
  - ACUTE MYOCARDIAL INFARCTION [None]
  - CORONARY ARTERY STENOSIS [None]
  - LEFT VENTRICULAR HYPERTROPHY [None]
  - LEFT VENTRICULAR FAILURE [None]
  - AORTIC VALVE STENOSIS [None]
  - ATRIOVENTRICULAR BLOCK FIRST DEGREE [None]
  - ANGINA PECTORIS [None]
